FAERS Safety Report 20971706 (Version 1)
Quarter: 2022Q2

REPORT INFORMATION
  Report Type: Spontaneous
  Country: US (occurrence: US)
  Receive Date: 20220616
  Receipt Date: 20220616
  Transmission Date: 20220721
  Serious: No
  Sender: FDA-Public Use
  Company Number: US-SANOFI-01137481

PATIENT
  Age: 73 Year
  Sex: Female

DRUGS (3)
  1. LANTUS SOLOSTAR [Suspect]
     Active Substance: INSULIN GLARGINE
     Indication: Type 2 diabetes mellitus
     Dosage: DRUG STRUCTURE DOSAGE : 42 UNITS DRUG INTERVAL DOSAGE : DAILY DRUG TREATMENT DURATION:10+ YEARS
  2. HUMALOG [Concomitant]
     Active Substance: INSULIN LISPRO
  3. BYDUREON BCISE [Concomitant]
     Active Substance: EXENATIDE

REACTIONS (3)
  - Dry eye [Unknown]
  - Visual impairment [Unknown]
  - Inappropriate schedule of product administration [Unknown]
